FAERS Safety Report 4839003-1 (Version None)
Quarter: 2005Q4

REPORT INFORMATION
  Report Type: 
  Country: None (occurrence: None)
  Receive Date: 20051024
  Receipt Date: 20050914
  Transmission Date: 20060501
  Serious: No
  Sender: FDA-Public Use
  Company Number: 2005-BP-16304BP

PATIENT
  Age: 55 Year
  Sex: Male

DRUGS (3)
  1. APTIVUS [Suspect]
     Indication: HIV INFECTION
     Dosage: 1000/400 MG (SEE TEXT, APTIVUS/RTV: 250/100 MG 2 HS) PO
     Route: 048
     Dates: start: 20050907
  2. T-20 (ENFUVIRTIDE) [Suspect]
     Indication: HIV INFECTION
     Dosage: PO
     Route: 048
     Dates: start: 20050907
  3. TRUVADA [Concomitant]

REACTIONS (3)
  - NAUSEA [None]
  - THROMBOCYTOPENIA [None]
  - VOMITING [None]
